FAERS Safety Report 16984841 (Version 2)
Quarter: 2019Q4

REPORT INFORMATION
  Report Type: Spontaneous
  Country: US (occurrence: US)
  Receive Date: 20191101
  Receipt Date: 20191203
  Transmission Date: 20200122
  Serious: Yes (Life-Threatening, Hospitalization)
  Sender: FDA-Public Use
  Company Number: US-ASTRAZENECA-2019SF51977

PATIENT
  Age: 68 Year
  Sex: Male

DRUGS (3)
  1. DURVALUMAB. [Suspect]
     Active Substance: DURVALUMAB
     Indication: ADENOSQUAMOUS CELL LUNG CANCER
     Dosage: FOUR BAG, SIXTEEN STEP DESENSITIZATION PROTOCOL WITH A STANDARD VOLUME OF 250ML PER BAG
     Route: 042
  2. DURVALUMAB. [Suspect]
     Active Substance: DURVALUMAB
     Indication: ADENOSQUAMOUS CELL LUNG CANCER
     Dosage: 10CYCLES ADMINISTERED AFTER THE DESENSITIZATION
     Route: 042
  3. DURVALUMAB. [Suspect]
     Active Substance: DURVALUMAB
     Indication: ADENOSQUAMOUS CELL LUNG CANCER
     Dosage: 10 MG/KG EVERY TWO WEEKS, 8 CYCLES
     Route: 042

REACTIONS (2)
  - Respiratory failure [Recovered/Resolved]
  - Hypotension [Recovered/Resolved]
